FAERS Safety Report 9736239 (Version 4)
Quarter: 2014Q1

REPORT INFORMATION
  Report Type: Report from Study
  Country: CO (occurrence: CO)
  Receive Date: 20131206
  Receipt Date: 20140131
  Transmission Date: 20141002
  Serious: Yes (Hospitalization)
  Sender: FDA-Public Use
  Company Number: CO-ROCHE-1312415

PATIENT
  Age: 65 Year
  Sex: Female
  Weight: 71 kg

DRUGS (8)
  1. LUCENTIS [Suspect]
     Indication: DIABETIC RETINAL OEDEMA
     Dosage: IN LEFT EYE
     Route: 050
     Dates: start: 20130913
  2. LUCENTIS [Suspect]
     Indication: MACULAR DEGENERATION
  3. LUCENTIS [Suspect]
     Indication: OCULAR HYPERAEMIA
  4. OMEPRAZOLE [Concomitant]
  5. LOSARTAN POTASSIUM [Concomitant]
  6. LOVASTATIN [Concomitant]
  7. AMLODIPINE [Concomitant]
  8. FOLIC ACID [Concomitant]

REACTIONS (2)
  - Cholelithiasis [Recovering/Resolving]
  - Urinary tract infection [Recovering/Resolving]
